FAERS Safety Report 16723962 (Version 1)
Quarter: 2019Q3

REPORT INFORMATION
  Report Type: Spontaneous
  Country: GB (occurrence: GB)
  Receive Date: 20190821
  Receipt Date: 20190821
  Transmission Date: 20191005
  Serious: Yes (Death)
  Sender: FDA-Public Use
  Company Number: GB-ROCHE-2373986

PATIENT
  Age: 40 Year
  Sex: Female
  Weight: 56.4 kg

DRUGS (2)
  1. GEFITINIB. [Concomitant]
     Active Substance: GEFITINIB
     Route: 065
  2. ATEZOLIZUMAB. [Suspect]
     Active Substance: ATEZOLIZUMAB
     Indication: LUNG NEOPLASM MALIGNANT
     Route: 051
     Dates: start: 20190614, end: 20190625

REACTIONS (3)
  - Loss of consciousness [Fatal]
  - Pyrexia [Fatal]
  - Neurotoxicity [Fatal]

NARRATIVE: CASE EVENT DATE: 20190628
